FAERS Safety Report 24780051 (Version 1)
Quarter: 2024Q4

REPORT INFORMATION
  Report Type: Spontaneous
  Country: US (occurrence: US)
  Receive Date: 20241227
  Receipt Date: 20241227
  Transmission Date: 20250114
  Serious: No
  Sender: SANOFI AVENTIS
  Company Number: US-SA-2024SA379670

PATIENT
  Age: 58 Year
  Sex: Male

DRUGS (7)
  1. DUPIXENT [Suspect]
     Active Substance: DUPILUMAB
     Indication: Dermatitis atopic
     Dosage: 300 MG, QOW
     Route: 058
  2. BETAMETH DIPROPIONATE [Concomitant]
  3. FAMOTIDINE [Concomitant]
     Active Substance: FAMOTIDINE
  4. KENALOG [Concomitant]
     Active Substance: TRIAMCINOLONE ACETONIDE
  5. LACTATED RINGERS SOLUTION [Concomitant]
     Active Substance: CALCIUM CHLORIDE\POTASSIUM CHLORIDE\SODIUM CHLORIDE\SODIUM LACTATE
  6. MELOXICAM [Concomitant]
     Active Substance: MELOXICAM
  7. PIMECROLIMUS [Concomitant]
     Active Substance: PIMECROLIMUS

REACTIONS (4)
  - Discomfort [Unknown]
  - Sleep disorder due to a general medical condition [Unknown]
  - Rash [Unknown]
  - Dermatitis atopic [Unknown]

NARRATIVE: CASE EVENT DATE: 20240101
